FAERS Safety Report 8013390-8 (Version None)
Quarter: 2011Q4

REPORT INFORMATION
  Report Type: 
  Country: None (occurrence: None)
  Receive Date: 20111229
  Receipt Date: 20111222
  Transmission Date: 20120403
  Serious: Yes (Death, Hospitalization)
  Sender: FDA-Public Use
  Company Number: US-CELGENEUS-163-20785-11112736

PATIENT
  Sex: Female
  Weight: 81.266 kg

DRUGS (11)
  1. THALOMID [Suspect]
     Dosage: 200-50MG
     Route: 048
     Dates: start: 20091101
  2. THALOMID [Suspect]
     Dosage: 100 MILLIGRAM
     Route: 048
     Dates: start: 20110501
  3. OXYCODONE HCL [Concomitant]
     Indication: PAIN
     Dosage: 1-2
     Route: 065
     Dates: start: 20110818
  4. XANAX [Concomitant]
     Indication: ANXIETY
     Dosage: .25 MILLIGRAM
     Route: 065
     Dates: start: 20091203
  5. THALOMID [Suspect]
     Indication: MULTIPLE MYELOMA
     Dosage: 100 MILLIGRAM
     Route: 048
     Dates: start: 20091101
  6. VELCADE [Concomitant]
     Indication: MULTIPLE MYELOMA
     Dosage: 2.3 MILLIGRAM
     Dates: start: 20091008, end: 20111122
  7. THALOMID [Suspect]
     Dosage: 200 MILLIGRAM
     Route: 048
     Dates: start: 20111101
  8. OXYCONTIN [Concomitant]
     Indication: PAIN
     Dosage: 60 MILLIGRAM
     Route: 065
  9. OXYCONTIN [Concomitant]
     Dosage: 20 MILLIGRAM
     Route: 065
     Dates: start: 20110913
  10. MORPHINE SULFATE [Concomitant]
     Indication: BREAKTHROUGH PAIN
     Route: 065
  11. DEXAMETHASONE [Concomitant]
     Indication: MULTIPLE MYELOMA
     Dosage: 40 MILLIGRAM
     Route: 041
     Dates: start: 20091016, end: 20111122

REACTIONS (2)
  - PATHOLOGICAL FRACTURE [None]
  - DEATH [None]
